FAERS Safety Report 12739410 (Version 1)
Quarter: 2016Q3

REPORT INFORMATION
  Report Type: Spontaneous
  Country: US (occurrence: US)
  Receive Date: 20160913
  Receipt Date: 20160913
  Transmission Date: 20161109
  Serious: No
  Sender: FDA-Public Use
  Company Number: US-RECKITT BENCKISER HEALTHCARE INT LIMITED-RB-83464-2016

PATIENT
  Age: 74 Year
  Sex: Female

DRUGS (2)
  1. MUCINEX [Suspect]
     Active Substance: GUAIFENESIN
     Indication: PRODUCT USED FOR UNKNOWN INDICATION
     Dosage: 600 MG, SINGLE (NIGHT)
     Route: 065
     Dates: start: 20160304, end: 20160304
  2. MUCINEX [Suspect]
     Active Substance: GUAIFENESIN
     Dosage: 600 MG, BID
     Route: 065
     Dates: start: 20160305, end: 20160305

REACTIONS (1)
  - Dry mouth [Recovered/Resolved]

NARRATIVE: CASE EVENT DATE: 201603
